FAERS Safety Report 19469053 (Version 1)
Quarter: 2021Q2

REPORT INFORMATION
  Report Type: Other
  Country: US (occurrence: US)
  Receive Date: 20210628
  Receipt Date: 20210628
  Transmission Date: 20210717
  Serious: Yes (Hospitalization, Disabling, Other)
  Sender: FDA-Public Use
  Company Number: US-ROCHE-2855062

PATIENT
  Age: 55 Year
  Sex: Male

DRUGS (19)
  1. METAXALONE. [Concomitant]
     Active Substance: METAXALONE
     Route: 048
  2. PANTOPRAZOLE [Concomitant]
     Active Substance: PANTOPRAZOLE
     Route: 048
  3. BACLOFEN. [Concomitant]
     Active Substance: BACLOFEN
     Route: 048
  4. GABAPENTINE [Concomitant]
     Active Substance: GABAPENTIN
     Route: 048
  5. DULOXETINE. [Concomitant]
     Active Substance: DULOXETINE
     Route: 048
  6. APLISOL [Concomitant]
     Active Substance: TUBERCULIN PURIFIED PROTEIN DERIVATIVE
     Route: 023
  7. TYLENOL [Concomitant]
     Active Substance: ACETAMINOPHEN
     Dosage: 2 TABLETS
     Route: 048
  8. VITAMIN D3 [Concomitant]
     Active Substance: CHOLECALCIFEROL
     Dosage: 50 MCG
     Route: 048
  9. OCREVUS [Suspect]
     Active Substance: OCRELIZUMAB
     Route: 042
  10. GUAIFENESIN. [Concomitant]
     Active Substance: GUAIFENESIN
     Route: 048
  11. POTASSIUM CHLORIDE. [Concomitant]
     Active Substance: POTASSIUM CHLORIDE
     Route: 048
  12. SEROQUEL [Concomitant]
     Active Substance: QUETIAPINE FUMARATE
     Route: 048
  13. ELIQUIS [Concomitant]
     Active Substance: APIXABAN
  14. MYLANTA [RANITIDINE HYDROCHLORIDE] [Concomitant]
  15. OCREVUS [Suspect]
     Active Substance: OCRELIZUMAB
     Indication: RELAPSING MULTIPLE SCLEROSIS
     Dosage: DOT: 13/FEB/2019, 27/FEB/2019
     Route: 042
     Dates: start: 2019
  16. FERROUS SULFATE. [Concomitant]
     Active Substance: FERROUS SULFATE
     Route: 048
  17. LOPERAMIDE [Concomitant]
     Active Substance: LOPERAMIDE
     Route: 048
  18. METOPROLOL. [Concomitant]
     Active Substance: METOPROLOL
     Route: 048
  19. NORCO [Concomitant]
     Active Substance: ACETAMINOPHEN\HYDROCODONE BITARTRATE
     Route: 048

REACTIONS (10)
  - Essential hypertension [Unknown]
  - Deep vein thrombosis [Unknown]
  - Coordination abnormal [Unknown]
  - Polyneuropathy [Unknown]
  - COVID-19 [Unknown]
  - Embolism [Unknown]
  - Muscle spasms [Unknown]
  - Gait disturbance [Unknown]
  - Gastrooesophageal reflux disease [Unknown]
  - Major depression [Unknown]

NARRATIVE: CASE EVENT DATE: 20200210
